FAERS Safety Report 7089992-2 (Version None)
Quarter: 2010Q4

REPORT INFORMATION
  Report Type: 
  Country: None (occurrence: None)
  Receive Date: 20101109
  Receipt Date: 20101029
  Transmission Date: 20110411
  Serious: Yes (Hospitalization)
  Sender: FDA-Public Use
  Company Number: US-BIOGENIDEC-2010BI038540

PATIENT
  Age: 52 Year
  Sex: Female
  Weight: 121 kg

DRUGS (16)
  1. TYSABRI [Suspect]
     Indication: MULTIPLE SCLEROSIS
     Route: 042
     Dates: start: 20080908
  2. TRIAMTERENE [Concomitant]
  3. HYDROCHLOROTHIAZIDE [Concomitant]
  4. NITROFURANTOIN [Concomitant]
  5. NAPROXEN [Concomitant]
  6. OXYBUTYNIN [Concomitant]
  7. CYMBALTA [Concomitant]
  8. ARICEPT [Concomitant]
  9. LORAZEPAM [Concomitant]
  10. TOPIRAMATE [Concomitant]
  11. CLONAZEPAM [Concomitant]
  12. SPIRONOLACTONE [Concomitant]
  13. GABAPENTIN [Concomitant]
  14. POTASSIUM (NOS) [Concomitant]
  15. MAGNESIUM OXIDE [Concomitant]
  16. VITAMIN B-12 [Concomitant]

REACTIONS (3)
  - DEVICE DAMAGE [None]
  - FALL [None]
  - JOINT INJURY [None]
